FAERS Safety Report 4363601-5 (Version None)
Quarter: 2004Q2

REPORT INFORMATION
  Report Type: 
  Country: None (occurrence: None)
  Receive Date: 20040524
  Receipt Date: 20040524
  Transmission Date: 20050107
  Serious: No
  Sender: FDA-Public Use
  Company Number: None

PATIENT
  Sex: Male
  Weight: 77.1115 kg

DRUGS (2)
  1. NEFAZODONE HCL [Suspect]
     Indication: ANXIETY
     Dosage: 2 TABLET HS ORAL
     Route: 048
     Dates: start: 20040202, end: 20040502
  2. NEFAZODONE HCL [Suspect]
     Indication: DEPRESSION
     Dosage: 2 TABLET HS ORAL
     Route: 048
     Dates: start: 20040202, end: 20040502

REACTIONS (4)
  - LIVER FUNCTION TEST ABNORMAL [None]
  - OEDEMA PERIPHERAL [None]
  - PHARMACEUTICAL PRODUCT COMPLAINT [None]
  - WEIGHT INCREASED [None]
